FAERS Safety Report 10257939 (Version 1)
Quarter: 2014Q2

REPORT INFORMATION
  Report Type: Spontaneous
  Country: US (occurrence: US)
  Receive Date: 20140625
  Receipt Date: 20140625
  Transmission Date: 20141212
  Serious: No
  Sender: FDA-Public Use
  Company Number: US-BAYER-2014-093172

PATIENT
  Sex: Female

DRUGS (1)
  1. ALEVE CAPLET [Suspect]
     Indication: BACK PAIN
     Dosage: 4 DF, 24 HOURS
     Route: 048

REACTIONS (3)
  - Extra dose administered [None]
  - Intentional product misuse [None]
  - Inappropriate schedule of drug administration [None]
